FAERS Safety Report 15374969 (Version 1)
Quarter: 2018Q3

REPORT INFORMATION
  Report Type: Spontaneous
  Country: IT (occurrence: IT)
  Receive Date: 20180912
  Receipt Date: 20180912
  Transmission Date: 20181010
  Serious: Yes (Other)
  Sender: FDA-Public Use
  Company Number: IT-TEVA-2018-IT-866753

PATIENT
  Age: 5 Year
  Sex: Male

DRUGS (4)
  1. COLECALCIFEROL [Concomitant]
     Active Substance: CHOLECALCIFEROL
  2. AMOXICILLIN. [Suspect]
     Active Substance: AMOXICILLIN
     Indication: STREPTOCOCCAL INFECTION
     Route: 048
     Dates: start: 20161214, end: 20161220
  3. ENTEROGERMINA 2 [Concomitant]
     Route: 048
  4. TINSET 5% GEL [Concomitant]

REACTIONS (3)
  - Lip dry [Unknown]
  - Eyelid oedema [Unknown]
  - Rash [Recovering/Resolving]

NARRATIVE: CASE EVENT DATE: 20161220
